FAERS Safety Report 9908739 (Version 1)
Quarter: 2014Q1

REPORT INFORMATION
  Report Type: Spontaneous
  Country: US (occurrence: US)
  Receive Date: 20140219
  Receipt Date: 20140219
  Transmission Date: 20141002
  Serious: No
  Sender: FDA-Public Use
  Company Number: US-PFIZER INC-2014044621

PATIENT
  Sex: Female

DRUGS (2)
  1. ADVIL [Suspect]
     Indication: BACK PAIN
     Dosage: UNK, TWO TIMES A DAY (IN MORNING AND NIGHT)
  2. ADVIL [Suspect]
     Indication: MUSCLE SPASMS

REACTIONS (1)
  - Abnormal dreams [Unknown]
